FAERS Safety Report 4878009-3 (Version None)
Quarter: 2006Q1

REPORT INFORMATION
  Report Type: 
  Country: None (occurrence: None)
  Receive Date: 20060110
  Receipt Date: 20060102
  Transmission Date: 20060701
  Serious: Yes (Disabling)
  Sender: FDA-Public Use
  Company Number: 2005162001

PATIENT
  Age: 57 Year
  Sex: Female

DRUGS (5)
  1. CABERGOLINE [Suspect]
     Indication: PARKINSON'S DISEASE
     Dosage: SEE IMAGE
     Route: 048
     Dates: end: 20051028
  2. CABERGOLINE [Suspect]
     Indication: PARKINSON'S DISEASE
     Dosage: SEE IMAGE
     Route: 048
     Dates: start: 20020101
  3. ELDEPRYL [Concomitant]
  4. ATARIN (AMANTADINE HYDROCHLORIDE) [Concomitant]
  5. TIZANIDINE HCL [Concomitant]

REACTIONS (3)
  - AORTIC VALVE INCOMPETENCE [None]
  - CARDIAC MURMUR [None]
  - VENTRICULAR DYSFUNCTION [None]
